FAERS Safety Report 17693796 (Version 2)
Quarter: 2020Q2

REPORT INFORMATION
  Report Type: Spontaneous
  Country: NZ (occurrence: NZ)
  Receive Date: 20200422
  Receipt Date: 20200430
  Transmission Date: 20200714
  Serious: Yes (Other)
  Sender: FDA-Public Use
  Company Number: NZ-PFIZER INC-2019254312

PATIENT
  Age: 48 Year
  Sex: Female
  Weight: 50 kg

DRUGS (3)
  1. CODEINE PHOSPHATE [Concomitant]
     Active Substance: CODEINE PHOSPHATE
     Indication: INTERVERTEBRAL DISC PROTRUSION
     Dosage: 1 TO 2 TABLET, 3-4 HOURS
     Route: 048
     Dates: start: 2012
  2. MORPHINE [Suspect]
     Active Substance: MORPHINE
     Dosage: UNK
  3. GABAPENTIN. [Suspect]
     Active Substance: GABAPENTIN
     Indication: INTERVERTEBRAL DISC PROTRUSION
     Dosage: 1-2 NOCTE 100 MG
     Route: 048

REACTIONS (3)
  - Tooth injury [Not Recovered/Not Resolved]
  - Tooth abscess [Not Recovered/Not Resolved]
  - Periodontal disease [Not Recovered/Not Resolved]

NARRATIVE: CASE EVENT DATE: 20121012
